FAERS Safety Report 7415377-2 (Version None)
Quarter: 2011Q2

REPORT INFORMATION
  Report Type: 
  Country: None (occurrence: None)
  Receive Date: 20110414
  Receipt Date: 20110414
  Transmission Date: 20111010
  Serious: Yes (Other)
  Sender: FDA-Public Use
  Company Number: B0707941A

PATIENT
  Sex: Female

DRUGS (2)
  1. PREZISTA [Concomitant]
     Indication: HIV INFECTION
     Dosage: 300MG PER DAY
     Route: 048
     Dates: start: 20110301
  2. KIVEXA [Suspect]
     Indication: HIV INFECTION
     Dosage: 1UNIT PER DAY
     Route: 048
     Dates: start: 20110301

REACTIONS (1)
  - OCULAR ICTERUS [None]
